FAERS Safety Report 5699451-7 (Version None)
Quarter: 2008Q2

REPORT INFORMATION
  Report Type: 
  Country: None (occurrence: None)
  Receive Date: 20080407
  Receipt Date: 20080407
  Transmission Date: 20081010
  Serious: Yes (Disabling)
  Sender: FDA-Public Use
  Company Number: None

PATIENT
  Age: 78 Year
  Sex: Female
  Weight: 91.173 kg

DRUGS (2)
  1. LETROZOLE [Suspect]
     Indication: BREAST CANCER STAGE I
     Dosage: 2.5 MG DAILY ORAL
     Route: 048
     Dates: start: 20070101, end: 20070401
  2. LETROZOLE [Suspect]
     Indication: OESTROGEN RECEPTOR ASSAY POSITIVE
     Dosage: 2.5 MG DAILY ORAL
     Route: 048
     Dates: start: 20070101, end: 20070401

REACTIONS (2)
  - ARTHRALGIA [None]
  - MYALGIA [None]
